FAERS Safety Report 22370503 (Version 1)
Quarter: 2023Q2

REPORT INFORMATION
  Report Type: Spontaneous
  Country: FR (occurrence: FR)
  Receive Date: 20230526
  Receipt Date: 20230526
  Transmission Date: 20230721
  Serious: Yes (Hospitalization, Other)
  Sender: FDA-Public Use
  Company Number: None

PATIENT

DRUGS (11)
  1. IBUPROFEN [Suspect]
     Active Substance: IBUPROFEN
     Indication: Back pain
     Dosage: 400 MG, QD, TAKE 2 TABLETS IN TOTAL
     Route: 048
     Dates: start: 20230327, end: 20230328
  2. TIAPROFENIC ACID [Suspect]
     Active Substance: TIAPROFENIC ACID
     Indication: Inflammation
     Dosage: 200 MG, ONE TABLET MORNING, NOON, EVENING FOR 3 DAYS
     Route: 048
     Dates: start: 20230105, end: 20230108
  3. AMOXICILLIN [Concomitant]
     Active Substance: AMOXICILLIN
     Indication: Dental caries
     Dosage: 1 G, BID, 1G MORNING AND EVENING FOR 6 DAYS
     Route: 048
     Dates: start: 20221228, end: 20230103
  4. TROPATEPINE HYDROCHLORIDE [Concomitant]
     Active Substance: TROPATEPINE HYDROCHLORIDE
     Indication: Anxiety
     Dosage: 10 MG, QD, 10MG IN THE MORNING
     Route: 048
  5. ARIPIPRAZOLE [Concomitant]
     Active Substance: ARIPIPRAZOLE
     Indication: Anxiety
     Dosage: 10 MG, QD, 1 TABLET AT BEDTIME
     Route: 048
  6. MIDAZOLAM HYDROCHLORIDE [Concomitant]
     Active Substance: MIDAZOLAM HYDROCHLORIDE
     Indication: Seizure
     Dosage: 10 MG, TOTAL, AN INTRAORAL DOSE IF CRISIS
     Route: 048
  7. OMEPRAZOLE [Concomitant]
     Active Substance: OMEPRAZOLE
     Indication: Duodenogastric reflux
     Dosage: 20 MG, 1 CAPSULE MORNING AND EVENING FOR 5 DAYS
     Route: 048
     Dates: start: 20230415, end: 20230420
  8. OMEPRAZOLE [Concomitant]
     Active Substance: OMEPRAZOLE
     Dosage: 20 MG, QD, 1 CAPSULE IN THE EVENING FOR 1 MONTH
     Route: 048
     Dates: start: 20230420
  9. CYAMEMAZINE [Concomitant]
     Active Substance: CYAMEMAZINE
     Indication: Anxiety
     Dosage: 12.5 MG, QD, 12.5MG AT BEDTIME + 12.5MG IF PERSISTENT ANXIETY
     Route: 048
  10. ASCORBIC ACID\FERROUS SULFATE [Concomitant]
     Active Substance: ASCORBIC ACID\FERROUS SULFATE
     Indication: Iron deficiency anaemia
     Dosage: 1 DF, 1 CAPSULE MORNING, NOON AND EVENING FOR 1 MONTH
     Route: 048
     Dates: start: 20230422
  11. BIRODOGYL [Concomitant]
     Active Substance: METRONIDAZOLE\SPIRAMYCIN
     Indication: Tooth infection
     Dosage: 1 DF, 1 TABLET MORNING AND EVENING FOR 5 DAYS
     Route: 048
     Dates: start: 20230105, end: 20230110

REACTIONS (2)
  - Infection [Recovered/Resolved]
  - Endocarditis [Recovered/Resolved]

NARRATIVE: CASE EVENT DATE: 20230426
